FAERS Safety Report 8335575-3 (Version None)
Quarter: 2012Q2

REPORT INFORMATION
  Report Type: 
  Country: None (occurrence: None)
  Receive Date: 20120504
  Receipt Date: 20120430
  Transmission Date: 20120825
  Serious: Yes (Other)
  Sender: FDA-Public Use
  Company Number: DE-AMGEN-DEUSP2012026896

PATIENT
  Sex: Male

DRUGS (1)
  1. PROLIA [Suspect]
     Indication: HORMONE THERAPY
     Dosage: UNK UNK, Q6MO
     Dates: start: 20110822, end: 20120201

REACTIONS (2)
  - METASTASES TO LYMPH NODES [None]
  - METASTASES TO BONE [None]
